FAERS Safety Report 5341548-5 (Version None)
Quarter: 2007Q2

REPORT INFORMATION
  Report Type: 
  Country: None (occurrence: None)
  Receive Date: 20070529
  Receipt Date: 20070529
  Transmission Date: 20071010
  Serious: Yes (Other)
  Sender: FDA-Public Use
  Company Number: None

PATIENT
  Age: 83 Year
  Sex: Female
  Weight: 97.5234 kg

DRUGS (4)
  1. FORTICAL [Suspect]
     Indication: OSTEOPOROSIS
     Dosage: 1 SPRAY DAILY ALTERNATE NOSTRIL
     Route: 045
  2. DIOVAN [Concomitant]
  3. PRAVASTATIN [Concomitant]
  4. SPIRONOLACTONE [Concomitant]

REACTIONS (4)
  - CHILLS [None]
  - NAUSEA [None]
  - OEDEMA PERIPHERAL [None]
  - PAIN IN EXTREMITY [None]
